FAERS Safety Report 20713960 (Version 1)
Quarter: 2022Q2

REPORT INFORMATION
  Report Type: Spontaneous
  Country: US (occurrence: None)
  Receive Date: 20220414
  Receipt Date: 20220414
  Transmission Date: 20220721
  Serious: Yes (Hospitalization)
  Sender: FDA-Public Use
  Company Number: None

PATIENT
  Sex: Male

DRUGS (1)
  1. ARANESP [Suspect]
     Active Substance: DARBEPOETIN ALFA
     Indication: Anaemia
     Dosage: OTHER FREQUENCY : EVERY14DAYS;?
     Route: 042
     Dates: start: 202204

REACTIONS (6)
  - SARS-CoV-2 test positive [None]
  - Urinary tract infection [None]
  - Cerebrovascular accident [None]
  - Asthenia [None]
  - Confusional state [None]
  - Mental status changes [None]
